FAERS Safety Report 6295866-7 (Version None)
Quarter: 2009Q3

REPORT INFORMATION
  Report Type: 
  Country: None (occurrence: None)
  Receive Date: 20090804
  Receipt Date: 20090723
  Transmission Date: 20100115
  Serious: Yes (Other)
  Sender: FDA-Public Use
  Company Number: MX-ROCHE-646659

PATIENT
  Sex: Female
  Weight: 60 kg

DRUGS (1)
  1. DOLAC [Suspect]
     Indication: SURGERY
     Dosage: FREQUENCY: SINGLE DOSE.
     Route: 042
     Dates: start: 20090222, end: 20090222

REACTIONS (5)
  - DYSPHAGIA [None]
  - DYSPNOEA [None]
  - ERYTHEMA [None]
  - PRURITUS [None]
  - RASH [None]
